FAERS Safety Report 9058427 (Version 2)
Quarter: 2013Q2

REPORT INFORMATION
  Report Type: Spontaneous
  Country: AU (occurrence: None)
  Receive Date: 20130117
  Receipt Date: 20130508
  Transmission Date: 20140414
  Serious: Yes (Hospitalization)
  Sender: FDA-Public Use
  Company Number: 2013000001

PATIENT
  Age: 86 Year
  Sex: Female

DRUGS (2)
  1. ACEON [Suspect]
     Indication: HYPERTENSION
     Route: 048
     Dates: start: 2012
  2. VENTOLIN (SALBUTAMOL) INHALER [Concomitant]

REACTIONS (10)
  - Myocardial infarction [None]
  - Fatigue [None]
  - Asthenia [None]
  - Cough [None]
  - Aphonia [None]
  - Abdominal pain upper [None]
  - Aphagia [None]
  - Lower respiratory tract infection [None]
  - Cough [None]
  - Aortic dilatation [None]
